FAERS Safety Report 7125578-9 (Version None)
Quarter: 2010Q4

REPORT INFORMATION
  Report Type: 
  Country: None (occurrence: None)
  Receive Date: 20101112
  Receipt Date: 20101027
  Transmission Date: 20110411
  Serious: Yes (Death, Hospitalization)
  Sender: FDA-Public Use
  Company Number: 1000017111

PATIENT
  Age: 58 Year
  Sex: Female

DRUGS (4)
  1. CITALOPRAM HYDROBROMIDE [Suspect]
     Dosage: 20 MG (20 MG,1 IN 1 D)
  2. AMITRIPTYLINE HCL [Suspect]
     Dosage: 50 MG (25 MG,2 IN 1 D)
  3. SIMVASTATIN (SIMVASATIN) (SIMVASTATIN) [Concomitant]
  4. BENDROFLUMETHIAZIDE (BENDROFLUMETHIAZIDE) (BENDROFLUMETHIAZIDE) [Concomitant]

REACTIONS (16)
  - APRAXIA [None]
  - ATAXIA [None]
  - COMA [None]
  - DISSEMINATED INTRAVASCULAR COAGULATION [None]
  - DIZZINESS [None]
  - DRUG INTERACTION [None]
  - HAEMORRHAGE [None]
  - HEAD INJURY [None]
  - MECHANICAL VENTILATION [None]
  - MULTI-ORGAN FAILURE [None]
  - MUSCLE TWITCHING [None]
  - NUCLEAR MAGNETIC RESONANCE IMAGING BRAIN ABNORMAL [None]
  - NYSTAGMUS [None]
  - RHABDOMYOLYSIS [None]
  - SEROTONIN SYNDROME [None]
  - WOUND [None]
